FAERS Safety Report 7298704-9 (Version None)
Quarter: 2011Q1

REPORT INFORMATION
  Report Type: 
  Country: None (occurrence: None)
  Receive Date: 20110209
  Receipt Date: 20110125
  Transmission Date: 20110831
  Serious: Yes (Other)
  Sender: FDA-Public Use
  Company Number: FKO201100036

PATIENT
  Age: 71 Year
  Sex: Female

DRUGS (1)
  1. METHOTREXATE (MANUFACTURER UNKNOWN) (METHOTREXATE) (METHOTREXATE) [Suspect]
     Indication: DERMATOMYOSITIS

REACTIONS (6)
  - SKIN ULCER [None]
  - EPSTEIN-BARR VIRUS INFECTION [None]
  - SKIN NECROSIS [None]
  - SKIN LESION [None]
  - ABDOMINAL DISCOMFORT [None]
  - B-CELL LYMPHOMA [None]
